FAERS Safety Report 16754597 (Version 1)
Quarter: 2019Q3

REPORT INFORMATION
  Report Type: Spontaneous
  Country: NL (occurrence: NL)
  Receive Date: 20190829
  Receipt Date: 20190829
  Transmission Date: 20191005
  Serious: Yes (Other)
  Sender: FDA-Public Use
  Company Number: NL-AMGEN-NLDSP2019137005

PATIENT
  Age: 64 Year
  Sex: Female

DRUGS (1)
  1. PROLIA [Suspect]
     Active Substance: DENOSUMAB
     Indication: BREAST CANCER
     Dosage: 60 MILLIGRAM, Q6MO
     Route: 065
     Dates: start: 2013, end: 2018

REACTIONS (2)
  - Spinal compression fracture [Unknown]
  - Off label use [Unknown]

NARRATIVE: CASE EVENT DATE: 2013
